FAERS Safety Report 5255307-5 (Version None)
Quarter: 2007Q1

REPORT INFORMATION
  Report Type: 
  Country: None (occurrence: None)
  Receive Date: 20070305
  Receipt Date: 20070221
  Transmission Date: 20070707
  Serious: Yes (Other)
  Sender: FDA-Public Use
  Company Number: FR-GLAXOSMITHKLINE-B0449999A

PATIENT
  Age: 25 Year
  Sex: Female
  Weight: 60 kg

DRUGS (2)
  1. ARIXTRA [Suspect]
     Dosage: 2.5MG PER DAY
     Route: 058
     Dates: start: 20061110, end: 20061218
  2. LOVENOX [Concomitant]
     Dosage: .4ML PER DAY
     Route: 058
     Dates: start: 20061101, end: 20061109

REACTIONS (2)
  - THROMBOCYTHAEMIA [None]
  - THROMBOSIS [None]
